FAERS Safety Report 21451112 (Version 1)
Quarter: 2022Q4

REPORT INFORMATION
  Report Type: Spontaneous
  Country: US (occurrence: US)
  Receive Date: 20221013
  Receipt Date: 20221013
  Transmission Date: 20230113
  Serious: No
  Sender: FDA-Public Use
  Company Number: US-BRISTOL-MYERS SQUIBB COMPANY-2022-118138

PATIENT
  Age: 58 Year
  Sex: Female

DRUGS (3)
  1. ORENCIA [Suspect]
     Active Substance: ABATACEPT
     Indication: Rheumatoid arthritis
     Route: 058
     Dates: start: 20220920
  2. ORENCIA [Suspect]
     Active Substance: ABATACEPT
     Indication: Multiple sclerosis
  3. ORENCIA [Suspect]
     Active Substance: ABATACEPT
     Indication: Fibromyalgia

REACTIONS (5)
  - Pain [Unknown]
  - Arthralgia [Unknown]
  - Back pain [Unknown]
  - Intentional product use issue [Unknown]
  - Gait disturbance [Unknown]
